FAERS Safety Report 20968257 (Version 3)
Quarter: 2022Q3

REPORT INFORMATION
  Report Type: Spontaneous
  Country: US (occurrence: US)
  Receive Date: 20220616
  Receipt Date: 20220708
  Transmission Date: 20221027
  Serious: Yes (Other)
  Sender: FDA-Public Use
  Company Number: US-SUNOVION-2022SUN001768

PATIENT
  Sex: Female

DRUGS (2)
  1. LATUDA [Suspect]
     Active Substance: LURASIDONE HYDROCHLORIDE
     Indication: Bipolar disorder
     Dosage: 20 MG
     Route: 048
  2. LATUDA [Suspect]
     Active Substance: LURASIDONE HYDROCHLORIDE
     Indication: Bipolar II disorder

REACTIONS (10)
  - Homicidal ideation [Unknown]
  - Paradoxical drug reaction [Unknown]
  - Anhedonia [Unknown]
  - Mania [Unknown]
  - Psychotic disorder [Unknown]
  - Psychomotor hyperactivity [Unknown]
  - Restlessness [Unknown]
  - Akathisia [Unknown]
  - Insomnia [Unknown]
  - Agitation [Unknown]
